FAERS Safety Report 11025362 (Version 1)
Quarter: 2015Q2

REPORT INFORMATION
  Report Type: Spontaneous
  Country: US (occurrence: US)
  Receive Date: 20150414
  Receipt Date: 20150414
  Transmission Date: 20150821
  Serious: No
  Sender: FDA-Public Use
  Company Number: US-BAYER-2015-118309

PATIENT
  Age: 83 Year
  Sex: Female
  Weight: 77 kg

DRUGS (6)
  1. DULOXETINE [Concomitant]
     Active Substance: DULOXETINE
  2. VITAMIN D3 [Concomitant]
     Active Substance: CHOLECALCIFEROL
  3. MIRALAX [Suspect]
     Active Substance: POLYETHYLENE GLYCOL 3350
     Indication: CONSTIPATION
     Dosage: 4.5 DF, PRN
     Route: 048
     Dates: start: 2013
  4. LANSOPRAZOLE. [Concomitant]
     Active Substance: LANSOPRAZOLE
  5. VERAPAMIL HCL A [Concomitant]
  6. TRIAMTERENE AND HYDROCHLOROTHIAZIDE [Concomitant]
     Active Substance: HYDROCHLOROTHIAZIDE\TRIAMTERENE

REACTIONS (4)
  - Abdominal discomfort [Not Recovered/Not Resolved]
  - Off label use [Unknown]
  - Diarrhoea [Not Recovered/Not Resolved]
  - Faecal incontinence [Not Recovered/Not Resolved]

NARRATIVE: CASE EVENT DATE: 2013
